FAERS Safety Report 9412555 (Version 4)
Quarter: 2013Q3

REPORT INFORMATION
  Report Type: Spontaneous
  Country: JP (occurrence: JP)
  Receive Date: 20130722
  Receipt Date: 20130913
  Transmission Date: 20140515
  Serious: Yes (Death, Other)
  Sender: FDA-Public Use
  Company Number: JP-B.I. PHARMACEUTICALS,INC./RIDGEFIELD-2013-BI-19113NB

PATIENT
  Age: 74 Year
  Sex: Female

DRUGS (3)
  1. PRAZAXA [Suspect]
     Dosage: 150 MG
     Route: 048
  2. GASTER D [Concomitant]
     Dosage: 20 MG
     Route: 048
  3. FRANDOL S [Concomitant]
     Indication: CARDIAC FAILURE
     Dosage: 40 MG
     Route: 062

REACTIONS (2)
  - Cardiac failure [Fatal]
  - Disuse syndrome [Fatal]
